FAERS Safety Report 19830275 (Version 1)
Quarter: 2021Q3

REPORT INFORMATION
  Report Type: Spontaneous
  Country: US (occurrence: US)
  Receive Date: 20210914
  Receipt Date: 20210914
  Transmission Date: 20211014
  Serious: Yes (Hospitalization)
  Sender: FDA-Public Use
  Company Number: None

PATIENT
  Age: 61 Year
  Sex: Female
  Weight: 108 kg

DRUGS (1)
  1. ASPIRIN. [Suspect]
     Active Substance: ASPIRIN
     Dates: start: 20181201, end: 20210906

REACTIONS (6)
  - Postoperative wound infection [None]
  - Breast tenderness [None]
  - Staphylococcal infection [None]
  - Leukocytosis [None]
  - Erythema [None]
  - Tachycardia [None]

NARRATIVE: CASE EVENT DATE: 20210906
